FAERS Safety Report 24402202 (Version 1)
Quarter: 2024Q4

REPORT INFORMATION
  Report Type: Spontaneous
  Country: US (occurrence: US)
  Receive Date: 20241007
  Receipt Date: 20241007
  Transmission Date: 20250114
  Serious: Yes (Other)
  Sender: ZYDUS PHARM
  Company Number: US-CADILA HEALTHCARE LIMITED-US-ZYDUS-112665

PATIENT

DRUGS (13)
  1. ARIPIPRAZOLE [Suspect]
     Active Substance: ARIPIPRAZOLE
     Indication: Autism spectrum disorder
     Dosage: 2.5 MILLIGRAM, QD
     Route: 065
  2. OLANZAPINE [Suspect]
     Active Substance: OLANZAPINE
     Indication: Autism spectrum disorder
     Dosage: 5 MILLIGRAM, QD, DAILY
     Route: 065
  3. SERTRALINE [Suspect]
     Active Substance: SERTRALINE HYDROCHLORIDE
     Indication: Autism spectrum disorder
     Dosage: 50 MILLIGRAM, QD
     Route: 065
  4. RISPERIDONE [Suspect]
     Active Substance: RISPERIDONE
     Indication: Autism spectrum disorder
     Dosage: 1 MILLIGRAM, BID
     Route: 065
  5. RISPERIDONE [Suspect]
     Active Substance: RISPERIDONE
     Dosage: 0.5 MILLIGRAM, DAILY
     Route: 065
  6. RISPERIDONE [Suspect]
     Active Substance: RISPERIDONE
     Dosage: 1 MILLIGRAM, QD, NIGHTLY
     Route: 065
  7. RISPERIDONE [Suspect]
     Active Substance: RISPERIDONE
     Dosage: 0.25 MILLIGRAM, BID
     Route: 065
  8. BUSPIRONE [Suspect]
     Active Substance: BUSPIRONE HYDROCHLORIDE
     Indication: Autism spectrum disorder
     Dosage: 5 MILLIGRAM, BID
     Route: 065
  9. CLONAZEPAM [Suspect]
     Active Substance: CLONAZEPAM
     Indication: Autism spectrum disorder
     Dosage: 0.25 MILLIGRAM, QD
     Route: 065
  10. LORAZEPAM [Suspect]
     Active Substance: LORAZEPAM
     Indication: Autism spectrum disorder
     Dosage: 1 MILLIGRAM, DAILY
     Route: 065
  11. NALTREXONE [Suspect]
     Active Substance: NALTREXONE
     Indication: Autism spectrum disorder
     Dosage: 50 MILLIGRAM, DAILY
     Route: 065
  12. VALPROATE [Suspect]
     Active Substance: VALPROIC ACID
     Indication: Autism spectrum disorder
     Dosage: 500 MILLIGRAM, EXTENDED RELEASE TABLET
     Route: 065
  13. VALPROATE [Suspect]
     Active Substance: VALPROIC ACID
     Dosage: 250 MILLIGRAM, QD, NIGHTLY
     Route: 065

REACTIONS (11)
  - Parotitis [Unknown]
  - Salivary hypersecretion [Unknown]
  - Hyperammonaemia [Unknown]
  - Disinhibition [Unknown]
  - Sedation [Unknown]
  - Aggression [Unknown]
  - Tremor [Unknown]
  - Akathisia [Unknown]
  - Gastrointestinal disorder [Unknown]
  - Nausea [Unknown]
  - Confusional state [Unknown]
